FAERS Safety Report 7337854-5 (Version None)
Quarter: 2011Q1

REPORT INFORMATION
  Report Type: 
  Country: None (occurrence: None)
  Receive Date: 20110308
  Receipt Date: 20110301
  Transmission Date: 20110831
  Serious: Yes (Death)
  Sender: FDA-Public Use
  Company Number: NL-ROCHE-757603

PATIENT
  Sex: Male
  Weight: 61 kg

DRUGS (11)
  1. AVASTIN [Suspect]
     Route: 042
  2. METOPROLOL [Concomitant]
     Dosage: REPORTED FREQUENCY: 50 MG AND FREQUENCY:QD.
     Route: 048
     Dates: start: 20100901, end: 20101203
  3. GRANISETRON HCL [Concomitant]
     Dosage: REPORTED DOSE: 2MG AND FREQUENCY: QD.
     Route: 048
     Dates: start: 20101126, end: 20101211
  4. LOPERAMIDE [Concomitant]
     Route: 048
     Dates: start: 20101126, end: 20101203
  5. ELOXATIN [Suspect]
     Dosage: ROUTE REPORTED AS INFUSION.
     Route: 065
     Dates: start: 20101101
  6. HYDROCHLOROTHIAZIDE [Concomitant]
     Dosage: REPORTED DOSE: 12.5 MG AND FREQUENCY: QD.
     Route: 048
     Dates: end: 20101203
  7. LACTULOSE [Concomitant]
     Indication: LAXATIVE SUPPORTIVE CARE
     Dosage: FREQUENCY REPORTED AS QD.
     Route: 048
     Dates: start: 20101201, end: 20101208
  8. XELODA [Suspect]
     Route: 048
     Dates: start: 20101125
  9. METOCLOPRAMIDE HCL [Concomitant]
     Route: 048
     Dates: start: 20101126, end: 20101206
  10. RAMIPRIL [Concomitant]
     Route: 048
     Dates: end: 20101203
  11. NIFEDIPINE [Concomitant]
     Dosage: REPORTED DOSE: 30MG AND FREQUENCY: QD.
     Route: 048
     Dates: end: 20101203

REACTIONS (2)
  - SEPTIC SHOCK [None]
  - DEATH [None]
